FAERS Safety Report 10700019 (Version 2)
Quarter: 2015Q1

REPORT INFORMATION
  Report Type: Report from Study
  Country: SK (occurrence: SK)
  Receive Date: 20150109
  Receipt Date: 20150109
  Transmission Date: 20150721
  Serious: Yes (Death, Other)
  Sender: FDA-Public Use
  Company Number: SK-JNJFOC-20141009238

PATIENT
  Sex: Male
  Weight: 100 kg

DRUGS (6)
  1. XARELTO [Suspect]
     Active Substance: RIVAROXABAN
     Indication: THROMBOSIS PROPHYLAXIS
     Route: 048
     Dates: start: 20131212
  2. XARELTO [Suspect]
     Active Substance: RIVAROXABAN
     Indication: ATRIAL FIBRILLATION
     Route: 048
     Dates: start: 20131212
  3. FUROSEMID [Concomitant]
     Active Substance: FUROSEMIDE
     Route: 065
     Dates: start: 201302
  4. RAMIL [Concomitant]
     Route: 065
     Dates: start: 2010
  5. XARELTO [Suspect]
     Active Substance: RIVAROXABAN
     Indication: CEREBROVASCULAR ACCIDENT PROPHYLAXIS
     Route: 048
     Dates: start: 20131212
  6. CORONAL [Concomitant]
     Route: 065
     Dates: start: 201003

REACTIONS (2)
  - Gastroenteritis [Recovered/Resolved with Sequelae]
  - Sudden cardiac death [Fatal]

NARRATIVE: CASE EVENT DATE: 20140815
